FAERS Safety Report 4536960-8 (Version None)
Quarter: 2004Q4

REPORT INFORMATION
  Report Type: 
  Country: None (occurrence: None)
  Receive Date: 20041220
  Receipt Date: 20041203
  Transmission Date: 20050328
  Serious: Yes (Hospitalization)
  Sender: FDA-Public Use
  Company Number: S04-FRA-08093-01

PATIENT
  Age: 78 Year
  Sex: Male

DRUGS (8)
  1. AOTAL (ACAMPROSATE) [Suspect]
     Indication: ALCOHOLISM
     Dosage: 1998 MG QD PO
     Route: 048
     Dates: start: 20040718, end: 20040727
  2. AUGMENTIN '125' [Suspect]
     Indication: PNEUMONIA BACTERIAL
     Dosage: 1000 MG TID PO
     Route: 048
     Dates: start: 20040721, end: 20040726
  3. FLUCONAZOLE [Suspect]
     Indication: MYCOSIS FUNGOIDES
     Dosage: 1 TABLET QD PO
     Route: 048
     Dates: start: 20040723, end: 20040727
  4. PREVISCAN (FLUINDIONE) [Concomitant]
  5. ENALAPRIL MALEATE [Concomitant]
  6. CORDARONE [Concomitant]
  7. OXAZEPAM [Concomitant]
  8. LANSOPRAZOLE [Concomitant]

REACTIONS (8)
  - CHOLESTASIS [None]
  - CONDITION AGGRAVATED [None]
  - CYTOLYTIC HEPATITIS [None]
  - DRUG WITHDRAWAL SYNDROME [None]
  - MYCOSIS FUNGOIDES [None]
  - PNEUMONIA BACTERIAL [None]
  - RENAL FAILURE [None]
  - ULTRASOUND ABDOMEN ABNORMAL [None]
